FAERS Safety Report 17937579 (Version 1)
Quarter: 2020Q2

REPORT INFORMATION
  Report Type: Spontaneous
  Country: GR (occurrence: GR)
  Receive Date: 20200624
  Receipt Date: 20200624
  Transmission Date: 20200714
  Serious: Yes (Other)
  Sender: FDA-Public Use
  Company Number: GR-PFIZER INC-2020239081

PATIENT
  Age: 72 Year
  Sex: Female

DRUGS (3)
  1. LINEZOLID. [Suspect]
     Active Substance: LINEZOLID
     Indication: CELLULITIS STAPHYLOCOCCAL
  2. LINEZOLID. [Suspect]
     Active Substance: LINEZOLID
     Indication: RENAL IMPAIRMENT
  3. LINEZOLID. [Suspect]
     Active Substance: LINEZOLID
     Indication: STAPHYLOCOCCAL SEPSIS
     Dosage: 600 MG, 2X/DAY
     Route: 042

REACTIONS (4)
  - Toxicity to various agents [Recovered/Resolved]
  - Red blood cell vacuolisation [Recovered/Resolved]
  - Off label use [Unknown]
  - Product use in unapproved indication [Unknown]
